FAERS Safety Report 7904972-X (Version None)
Quarter: 2011Q4

REPORT INFORMATION
  Report Type: 
  Country: None (occurrence: None)
  Receive Date: 20111109
  Receipt Date: 20111031
  Transmission Date: 20120403
  Serious: Yes (Other)
  Sender: FDA-Public Use
  Company Number: US-BAYER-201036144NA

PATIENT
  Age: 22 Year
  Sex: Female
  Weight: 124.72 kg

DRUGS (10)
  1. YAZ [Suspect]
     Dosage: UNK
     Dates: start: 20081101, end: 20090401
  2. TRAZODONE HYDROCHLORIDE [Concomitant]
     Route: 048
  3. ONDANSETRON [Concomitant]
     Route: 048
  4. METHYLPREDNISOLONE [Concomitant]
     Route: 048
  5. BUPROPION HYDROCHLORIDE [Concomitant]
     Route: 048
  6. DROSPIRENONE AND ETHINYL ESTRADIOL [Suspect]
     Dosage: UNK
     Dates: start: 20090301, end: 20100101
  7. HYDROCODONE BITARTRATE AND ACETAMINOPHEN [Concomitant]
     Route: 048
  8. ABILIFY [Concomitant]
     Route: 048
  9. TRAMADOL HCL [Concomitant]
     Route: 048
  10. PRISTIQ [Concomitant]
     Route: 048

REACTIONS (10)
  - CONSTIPATION [None]
  - FLATULENCE [None]
  - DEPRESSION [None]
  - CHOLECYSTITIS [None]
  - ABDOMINAL DISTENSION [None]
  - CHOLECYSTECTOMY [None]
  - ANXIETY [None]
  - SCAR [None]
  - DIARRHOEA [None]
  - DYSPEPSIA [None]
